FAERS Safety Report 13565634 (Version 1)
Quarter: 2017Q2

REPORT INFORMATION
  Report Type: Spontaneous
  Country: US (occurrence: US)
  Receive Date: 20170519
  Receipt Date: 20170519
  Transmission Date: 20170830
  Serious: No
  Sender: FDA-Public Use
  Company Number: US-BION-20160248

PATIENT
  Age: 73 Year
  Sex: Female
  Weight: 70.31 kg

DRUGS (1)
  1. IBUPROFEN CAPSULES [Suspect]
     Active Substance: IBUPROFEN
     Indication: PROCEDURAL PAIN
     Route: 048

REACTIONS (1)
  - Pruritus [Recovered/Resolved]
